FAERS Safety Report 8592543-4 (Version None)
Quarter: 2012Q3

REPORT INFORMATION
  Report Type: 
  Country: None (occurrence: None)
  Receive Date: 20120814
  Receipt Date: 20120807
  Transmission Date: 20120928
  Serious: No
  Sender: FDA-Public Use
  Company Number: US-009507513-1208USA003319

PATIENT

DRUGS (1)
  1. PROSCAR [Suspect]
     Dosage: 5 MG, QD
     Route: 048

REACTIONS (1)
  - EJACULATION FAILURE [None]
